FAERS Safety Report 7713498-8 (Version None)
Quarter: 2011Q3

REPORT INFORMATION
  Report Type: 
  Country: None (occurrence: None)
  Receive Date: 20110822
  Receipt Date: 20110812
  Transmission Date: 20111222
  Serious: Yes (Life-Threatening, Hospitalization)
  Sender: FDA-Public Use
  Company Number: 07-AUR-00225

PATIENT
  Age: 81 Year
  Sex: Male

DRUGS (1)
  1. CITALOPRAM HYDROBROMIDE [Suspect]
     Indication: PRODUCT USED FOR UNKNOWN INDICATION

REACTIONS (3)
  - LONG QT SYNDROME [None]
  - TORSADE DE POINTES [None]
  - DIZZINESS [None]
